FAERS Safety Report 7855326-6 (Version None)
Quarter: 2011Q4

REPORT INFORMATION
  Report Type: 
  Country: None (occurrence: None)
  Receive Date: 20111026
  Receipt Date: 20111021
  Transmission Date: 20120403
  Serious: Yes (Hospitalization)
  Sender: FDA-Public Use
  Company Number: CH-ABBOTT-11P-151-0849209-00

PATIENT
  Age: 48 Year
  Sex: Male
  Weight: 58 kg

DRUGS (8)
  1. NORVIR [Suspect]
     Indication: HIV INFECTION
     Route: 048
  2. ZIAGEN [Concomitant]
     Indication: HIV INFECTION
  3. LAMIVUDINE (EPIVIR HBV) [Concomitant]
     Indication: HIV INFECTION
     Route: 048
  4. HEROIN [Concomitant]
     Indication: PRODUCT USED FOR UNKNOWN INDICATION
  5. METHADONE HCL [Concomitant]
     Indication: PRODUCT USED FOR UNKNOWN INDICATION
  6. VIREAD [Suspect]
     Indication: HIV INFECTION
     Route: 048
  7. REYATAZ [Concomitant]
     Indication: HIV INFECTION
     Route: 048
  8. COCAINE [Concomitant]
     Indication: PRODUCT USED FOR UNKNOWN INDICATION

REACTIONS (4)
  - RENAL TUBULAR DISORDER [None]
  - RENAL FAILURE ACUTE [None]
  - GENERAL PHYSICAL HEALTH DETERIORATION [None]
  - FANCONI SYNDROME [None]
